FAERS Safety Report 25873268 (Version 1)
Quarter: 2025Q4

REPORT INFORMATION
  Report Type: Spontaneous
  Country: EU (occurrence: EU)
  Receive Date: 20251002
  Receipt Date: 20251002
  Transmission Date: 20260118
  Serious: Yes (Hospitalization)
  Sender: PFIZER
  Company Number: EU-ROCHE-1085994

PATIENT
  Age: 68 Year
  Sex: Female

DRUGS (3)
  1. DOCETAXEL [Suspect]
     Active Substance: DOCETAXEL
     Indication: HER2 positive breast cancer
     Dosage: 123 MG
     Route: 042
     Dates: start: 20120622
  2. TRASTUZUMAB [Suspect]
     Active Substance: TRASTUZUMAB
     Indication: HER2 positive breast cancer
     Dosage: 544 MG. (8MG/KG)(INFUSION)
     Route: 042
     Dates: start: 20120621
  3. PLACEBO [Suspect]
     Active Substance: PLACEBO
     Indication: HER2 positive breast cancer
     Dosage: UNK
     Route: 042
     Dates: start: 20120621

REACTIONS (3)
  - Febrile neutropenia [Recovered/Resolved]
  - Device related thrombosis [Recovered/Resolved]
  - Vascular device infection [Recovered/Resolved]

NARRATIVE: CASE EVENT DATE: 20120705
